FAERS Safety Report 4677198-3 (Version None)
Quarter: 2005Q2

REPORT INFORMATION
  Report Type: 
  Country: None (occurrence: None)
  Receive Date: 20050531
  Receipt Date: 20050519
  Transmission Date: 20051028
  Serious: Yes (Other)
  Sender: FDA-Public Use
  Company Number: US-JNJFOC-20050103661

PATIENT
  Sex: Female
  Weight: 72.58 kg

DRUGS (21)
  1. REMICADE [Suspect]
     Dosage: INITIAL DOSE OF 3 MG/KG AND THAN EVERY 6-8 WEEKS, LAST DOSE 400 MG, PREVIOUS DOSES WERE 200-300 MG
     Route: 042
  2. MTX [Suspect]
  3. RESTORIL [Concomitant]
  4. PAXIL [Concomitant]
  5. CELEBREX [Concomitant]
  6. ZONEGRAN [Concomitant]
  7. MULTI-VITAMIN [Concomitant]
  8. MULTI-VITAMIN [Concomitant]
  9. MULTI-VITAMIN [Concomitant]
  10. MULTI-VITAMIN [Concomitant]
  11. MULTI-VITAMIN [Concomitant]
  12. MULTI-VITAMIN [Concomitant]
  13. MULTI-VITAMIN [Concomitant]
  14. MULTI-VITAMIN [Concomitant]
  15. FLAXSEED [Concomitant]
     Dosage: 0.7
  16. GLUCOSAMINE WITH CHONDROTIN [Concomitant]
  17. GLUCOSAMINE WITH CHONDROTIN [Concomitant]
  18. GLUCOSAMINE WITH CHONDROTIN [Concomitant]
  19. GLUCOSAMINE WITH CHONDROTIN [Concomitant]
  20. STEROID INJECTIONS [Concomitant]
     Dosage: 40-80 MG IM
  21. PREDNISONE [Concomitant]
     Dosage: VARIABLE

REACTIONS (9)
  - BLOOD LACTATE DEHYDROGENASE INCREASED [None]
  - DISSEMINATED TUBERCULOSIS [None]
  - FATIGUE [None]
  - GASTROINTESTINAL DISORDER [None]
  - HEADACHE [None]
  - LYMPHADENOPATHY [None]
  - MALAISE [None]
  - PNEUMOCYSTIS JIROVECI PNEUMONIA [None]
  - PYREXIA [None]
